FAERS Safety Report 18367713 (Version 1)
Quarter: 2020Q4

REPORT INFORMATION
  Report Type: Not Available
  Country: US (occurrence: US)
  Receive Date: 20201009
  Receipt Date: 20201009
  Transmission Date: 20210114
  Serious: No
  Sender: FDA-Public Use
  Company Number: US-C B FLEET CO INC-201912-US-004079

PATIENT
  Sex: Female

DRUGS (1)
  1. MONISTAT 7 WITH REUSABLE APPLICATOR [Suspect]
     Active Substance: MICONAZOLE NITRATE
     Indication: VULVOVAGINAL PRURITUS
     Dosage: DOSE UNKNOWN
     Route: 067
     Dates: start: 20191121

REACTIONS (2)
  - Hypersensitivity [Not Recovered/Not Resolved]
  - Vaginal haemorrhage [Not Recovered/Not Resolved]
